FAERS Safety Report 11107271 (Version 1)
Quarter: 2015Q2

REPORT INFORMATION
  Report Type: Spontaneous
  Country: US (occurrence: None)
  Receive Date: 20150511
  Receipt Date: 20150511
  Transmission Date: 20150821
  Serious: Yes (Life-Threatening, Hospitalization)
  Sender: FDA-Public Use
  Company Number: None

PATIENT
  Age: 76 Year
  Sex: Male
  Weight: 99.79 kg

DRUGS (2)
  1. IMURAN [Suspect]
     Active Substance: AZATHIOPRINE
     Indication: MYASTHENIA GRAVIS
     Dates: start: 20141124, end: 20141207
  2. IMURAN [Suspect]
     Active Substance: AZATHIOPRINE
     Indication: THERAPY CHANGE
     Dates: start: 20141124, end: 20141207

REACTIONS (6)
  - Chills [None]
  - Abasia [None]
  - Dysstasia [None]
  - Pyrexia [None]
  - Aphasia [None]
  - Incoherent [None]

NARRATIVE: CASE EVENT DATE: 20141207
